FAERS Safety Report 13920645 (Version 1)
Quarter: 2017Q3

REPORT INFORMATION
  Report Type: Spontaneous
  Country: US (occurrence: US)
  Receive Date: 20170830
  Receipt Date: 20170830
  Transmission Date: 20171127
  Serious: Yes (Life-Threatening, Hospitalization, Other)
  Sender: FDA-Public Use
  Company Number: None

PATIENT
  Age: 59 Year
  Sex: Female
  Weight: 60.75 kg

DRUGS (2)
  1. PROLIA [Suspect]
     Active Substance: DENOSUMAB
     Indication: BONE DENSITY DECREASED
     Dosage: SUBCUTANEOUS EVERY SIX MONTHS?
     Route: 058
     Dates: start: 20170104, end: 20170705
  2. AROMASIN [Concomitant]
     Active Substance: EXEMESTANE

REACTIONS (4)
  - Appendix disorder [None]
  - Nausea [None]
  - Sepsis [None]
  - Diarrhoea [None]

NARRATIVE: CASE EVENT DATE: 20170823
